FAERS Safety Report 9432489 (Version 2)
Quarter: 2013Q3

REPORT INFORMATION
  Report Type: Spontaneous
  Country: US (occurrence: US)
  Receive Date: 20130731
  Receipt Date: 20130917
  Transmission Date: 20140515
  Serious: Yes (Death, Hospitalization)
  Sender: FDA-Public Use
  Company Number: US-TEVA-421484USA

PATIENT
  Sex: Male

DRUGS (8)
  1. PROAIR HFA [Suspect]
     Indication: CHRONIC OBSTRUCTIVE PULMONARY DISEASE
     Dates: end: 20130723
  2. QVAR [Concomitant]
     Indication: CHRONIC OBSTRUCTIVE PULMONARY DISEASE
  3. LISINOPRIL [Concomitant]
     Dosage: 10 MILLIGRAM DAILY;
     Route: 048
  4. VERAPAMIL [Concomitant]
     Dosage: 360 MILLIGRAM DAILY;
     Route: 048
  5. PRAVASTATIN [Concomitant]
     Dosage: 40 MILLIGRAM DAILY;
     Route: 048
  6. ASPIRIN [Concomitant]
     Dosage: 81 MILLIGRAM DAILY;
     Route: 048
  7. DILANTIN [Concomitant]
     Dosage: 200 MILLIGRAM DAILY;
     Route: 048
  8. IPRATROPIUM [Concomitant]

REACTIONS (8)
  - Aortic valve disease [Fatal]
  - Coronary artery occlusion [Fatal]
  - Myocardial infarction [Fatal]
  - Multi-organ failure [Fatal]
  - Hypoxia [Unknown]
  - Peripheral vascular disorder [Unknown]
  - Renal failure [Unknown]
  - Gastrointestinal disorder [Unknown]
